FAERS Safety Report 26088435 (Version 1)
Quarter: 2025Q4

REPORT INFORMATION
  Report Type: Report from Study
  Country: EU (occurrence: EU)
  Receive Date: 20251125
  Receipt Date: 20251125
  Transmission Date: 20260118
  Serious: Yes (Hospitalization, Other)
  Sender: SANOFI AVENTIS
  Company Number: EU-SA-2025SA159679

PATIENT
  Age: 44 Year
  Sex: Male

DRUGS (13)
  1. TEPLIZUMAB [Suspect]
     Active Substance: TEPLIZUMAB
     Indication: Diabetes prophylaxis
     Dosage: 120.6 UG, 1X
     Route: 041
     Dates: start: 20250506, end: 20250506
  2. TEPLIZUMAB [Suspect]
     Active Substance: TEPLIZUMAB
     Dosage: 232 UG, 1X
     Route: 041
     Dates: start: 20250507, end: 20250507
  3. TEPLIZUMAB [Suspect]
     Active Substance: TEPLIZUMAB
     Dosage: 464 UG, 1X
     Route: 041
     Dates: start: 20250508, end: 20250508
  4. TEPLIZUMAB [Suspect]
     Active Substance: TEPLIZUMAB
     Dosage: 927.9 UG, 1X
     Route: 041
     Dates: start: 20250509, end: 20250509
  5. TEPLIZUMAB [Suspect]
     Active Substance: TEPLIZUMAB
     Dosage: 1911.5 UG, QD
     Route: 041
     Dates: start: 20250510, end: 20250516
  6. TEPLIZUMAB [Suspect]
     Active Substance: TEPLIZUMAB
     Dosage: 1911.5 UG, QD STEPWISE INCREASED
     Route: 041
     Dates: start: 20250519, end: 20250521
  7. LEVOTHYROXINE SODIUM [Concomitant]
     Active Substance: LEVOTHYROXINE SODIUM
     Indication: Hypothyroidism
     Dosage: 100 UG
  8. METRONIDAZOLE [Concomitant]
     Active Substance: METRONIDAZOLE
  9. TAZOBACTAM [Concomitant]
     Active Substance: TAZOBACTAM
  10. IBUPROFEN [Concomitant]
     Active Substance: IBUPROFEN
     Indication: Premedication
     Dosage: 800 MG
     Route: 048
     Dates: start: 20250506, end: 20250510
  11. DIMETHINDENE MALEATE [Concomitant]
     Active Substance: DIMETHINDENE MALEATE
     Indication: Premedication
     Dosage: 4 MG
     Route: 048
     Dates: start: 20250506, end: 20250510
  12. CHOLECALCIFEROL [Concomitant]
     Active Substance: CHOLECALCIFEROL
     Dosage: 1000 U
     Route: 048
  13. ARIPIPRAZOLE [Concomitant]
     Active Substance: ARIPIPRAZOLE
     Dosage: 5 MG
     Route: 048

REACTIONS (47)
  - Pneumonia [Recovering/Resolving]
  - Respiratory failure [Recovering/Resolving]
  - Epstein-Barr virus infection reactivation [Recovering/Resolving]
  - Serum ferritin increased [Recovering/Resolving]
  - Renal failure [Recovering/Resolving]
  - Lymphoproliferative disorder [Unknown]
  - Lymphoma [Unknown]
  - Multiple organ dysfunction syndrome [Recovering/Resolving]
  - Lymphadenopathy [Recovering/Resolving]
  - Hepatosplenomegaly [Recovering/Resolving]
  - Blood lactate dehydrogenase increased [Recovering/Resolving]
  - Abdominal lymphadenopathy [Recovering/Resolving]
  - Abdominal pain [Recovering/Resolving]
  - Dyspnoea exertional [Recovering/Resolving]
  - Blood alkaline phosphatase increased [Recovering/Resolving]
  - Herpes simplex test positive [Recovering/Resolving]
  - Gamma-glutamyltransferase increased [Recovering/Resolving]
  - Mesenteric lymphadenitis [Recovering/Resolving]
  - Decreased appetite [Recovering/Resolving]
  - Pleural effusion [Recovering/Resolving]
  - Blood uric acid increased [Recovering/Resolving]
  - Blood immunoglobulin G increased [Recovering/Resolving]
  - Aspartate aminotransferase increased [Recovering/Resolving]
  - Haemoglobin increased [Recovering/Resolving]
  - Fatigue [Recovering/Resolving]
  - Platelet count decreased [Recovering/Resolving]
  - Alanine aminotransferase increased [Recovering/Resolving]
  - Transaminases increased [Recovering/Resolving]
  - Leukopenia [Not Recovered/Not Resolved]
  - Hepatic failure [Unknown]
  - Respiratory distress [Unknown]
  - Hepatorenal syndrome [Unknown]
  - Ketonuria [Unknown]
  - Proteinuria [Unknown]
  - Vomiting [Unknown]
  - Epistaxis [Unknown]
  - Xeroderma [Unknown]
  - Blood creatinine increased [Recovered/Resolved]
  - Glomerular filtration rate decreased [Recovering/Resolving]
  - Haemoglobin decreased [Recovering/Resolving]
  - Red blood cell count decreased [Recovering/Resolving]
  - Haematocrit decreased [Recovering/Resolving]
  - Lymphopenia [Not Recovered/Not Resolved]
  - C-reactive protein increased [Recovered/Resolved]
  - Pyrexia [Recovered/Resolved]
  - Pruritus [Unknown]
  - Nausea [Unknown]

NARRATIVE: CASE EVENT DATE: 20250101
